FAERS Safety Report 4754098-1 (Version None)
Quarter: 2005Q3

REPORT INFORMATION
  Report Type: 
  Country: None (occurrence: None)
  Receive Date: 20050824
  Receipt Date: 20050527
  Transmission Date: 20060218
  Serious: No
  Sender: FDA-Public Use
  Company Number: SUS1-2005-00437

PATIENT
  Age: 68 Year
  Sex: Female

DRUGS (1)
  1. FOSRENOL [Suspect]
     Indication: BLOOD CALCIUM INCREASED
     Dosage: 500 MG 2 TABLETS, 3X/DAY, TID, ORAL
     Route: 048
     Dates: start: 20050501, end: 20050524

REACTIONS (4)
  - ARTHRALGIA [None]
  - JOINT RANGE OF MOTION DECREASED [None]
  - JOINT SWELLING [None]
  - OFF LABEL USE [None]
